FAERS Safety Report 16173188 (Version 1)
Quarter: 2019Q2

REPORT INFORMATION
  Report Type: Spontaneous
  Country: FR (occurrence: FR)
  Receive Date: 20190409
  Receipt Date: 20190409
  Transmission Date: 20190711
  Serious: Yes (Hospitalization)
  Sender: FDA-Public Use
  Company Number: FR-SUN PHARMACEUTICAL INDUSTRIES LTD-2019RR-204610

PATIENT
  Age: 31 Year
  Sex: Female

DRUGS (3)
  1. APRANAX [Suspect]
     Active Substance: NAPROXEN
     Indication: PAIN
     Dosage: 1 DOSAGE FORM, IN TOTAL
     Route: 048
     Dates: start: 20190222
  2. OMEPRAZOLE. [Suspect]
     Active Substance: OMEPRAZOLE
     Indication: ABDOMINAL PAIN UPPER
     Dosage: 1 DOSAGE FORM, IN TOTAL
     Route: 048
     Dates: start: 20190222
  3. PROFENID [Suspect]
     Active Substance: KETOPROFEN
     Indication: PAIN
     Dosage: 1 DOSAGE FORM, IN TOTAL
     Route: 048
     Dates: start: 20190222

REACTIONS (2)
  - Transaminases increased [Recovering/Resolving]
  - Acute generalised exanthematous pustulosis [Recovered/Resolved]

NARRATIVE: CASE EVENT DATE: 20190222
